FAERS Safety Report 10591723 (Version 2)
Quarter: 2015Q1

REPORT INFORMATION
  Report Type: Other
  Country: IT (occurrence: IT)
  Receive Date: 20141118
  Receipt Date: 20150123
  Transmission Date: 20150720
  Serious: Yes (Other)
  Sender: FDA-Public Use
  Company Number: IT-MYLANLABS-2014M1010280

PATIENT

DRUGS (1)
  1. CLARITHROMYCIN. [Suspect]
     Active Substance: CLARITHROMYCIN
     Indication: ANTIBIOTIC PROPHYLAXIS
     Dosage: 500 MG, TOTAL
     Route: 048
     Dates: start: 20140929, end: 20140929

REACTIONS (2)
  - Throat tightness [Recovering/Resolving]
  - Oral pruritus [Recovering/Resolving]

NARRATIVE: CASE EVENT DATE: 20140929
